FAERS Safety Report 9353969 (Version 1)
Quarter: 2013Q2

REPORT INFORMATION
  Report Type: Spontaneous
  Country: US (occurrence: US)
  Receive Date: 20130618
  Receipt Date: 20130618
  Transmission Date: 20140414
  Serious: No
  Sender: FDA-Public Use
  Company Number: US-009507513-1306USA006830

PATIENT
  Age: 77 Year
  Sex: Female

DRUGS (1)
  1. NASONEX [Suspect]
     Indication: UPPER-AIRWAY COUGH SYNDROME
     Dosage: 2 SPRAYS IN EACH NOSTRIL, QD
     Dates: start: 20130531

REACTIONS (3)
  - Glossodynia [Unknown]
  - Upper-airway cough syndrome [Not Recovered/Not Resolved]
  - Drug dose omission [Unknown]
